FAERS Safety Report 23661174 (Version 5)
Quarter: 2024Q3

REPORT INFORMATION
  Report Type: Spontaneous
  Country: JP (occurrence: JP)
  Receive Date: 20240322
  Receipt Date: 20240904
  Transmission Date: 20241016
  Serious: Yes (Life-Threatening, Hospitalization, Disabling)
  Sender: AMGEN
  Company Number: JP-Vifor (International) Inc.-VIT-2024-02450

PATIENT
  Age: 77 Year
  Sex: Female
  Weight: 46 kg

DRUGS (19)
  1. TAVNEOS [Suspect]
     Active Substance: AVACOPAN
     Indication: Microscopic polyangiitis
     Dosage: 30 MG B.I.D
     Route: 048
     Dates: start: 20231021, end: 20231206
  2. PREDNISOLONE [Suspect]
     Active Substance: PREDNISOLONE
     Indication: Microscopic polyangiitis
     Dosage: 5 MILLIGRAM, QD
     Route: 065
     Dates: start: 20231020
  3. PREDNISOLONE [Suspect]
     Active Substance: PREDNISOLONE
     Dosage: 5 MILLIGRAM
     Route: 065
  4. ALENDRONATE [Suspect]
     Active Substance: ALENDRONATE SODIUM
     Indication: Osteoporosis
     Dosage: 35 MILLIGRAM, QWK
     Route: 048
     Dates: start: 20231025, end: 20231206
  5. ALENDRONATE [Suspect]
     Active Substance: ALENDRONATE SODIUM
     Dosage: 35 MILLIGRAM, QWK
     Route: 048
     Dates: start: 20231229, end: 20240305
  6. SPIRONOLACTONE [Suspect]
     Active Substance: SPIRONOLACTONE
     Indication: Hypertension
     Dosage: 25 MILLIGRAM, QD
     Route: 048
     Dates: start: 20231026, end: 20231212
  7. SPIRONOLACTONE [Suspect]
     Active Substance: SPIRONOLACTONE
     Dosage: 25 MILLIGRAM
     Route: 048
     Dates: start: 20240121, end: 20240305
  8. PITAVASTATIN CALCIUM [Suspect]
     Active Substance: PITAVASTATIN CALCIUM
     Indication: Dyslipidaemia
     Dosage: PER ORAL MEDICINE
     Route: 048
     Dates: end: 20231211
  9. PITAVASTATIN CALCIUM [Suspect]
     Active Substance: PITAVASTATIN CALCIUM
     Dosage: PER ORAL MEDICINE
     Route: 048
     Dates: start: 20240115, end: 20240305
  10. ESOMEPRAZOLE [Suspect]
     Active Substance: ESOMEPRAZOLE
     Indication: Gastrooesophageal reflux disease
     Dosage: 20 MILLIGRAM, QD
     Route: 048
  11. ESOMEPRAZOLE [Suspect]
     Active Substance: ESOMEPRAZOLE
     Dosage: UNK
     Route: 048
     Dates: start: 20240306
  12. RITUXIMAB [Suspect]
     Active Substance: RITUXIMAB
     Indication: Microscopic polyangiitis
     Dosage: 600 MILLIGRAM, QWK
     Route: 040
     Dates: start: 20231020, end: 20231116
  13. VONOPRAZAN FUMARATE [Suspect]
     Active Substance: VONOPRAZAN FUMARATE
     Indication: Duodenal ulcer haemorrhage
     Dosage: PERORAL MEDICINE
     Route: 048
     Dates: start: 20231219, end: 20240305
  14. LEVOTHYROXINE SODIUM [Concomitant]
     Active Substance: LEVOTHYROXINE SODIUM
     Indication: Autoimmune thyroiditis
     Dosage: 25 MILLIGRAM, QD
     Route: 048
  15. URSO [Concomitant]
     Active Substance: URSODIOL
     Indication: Primary biliary cholangitis
     Dosage: 9 DOSAGE FORM
     Route: 048
  16. NATEGLINIDE [Concomitant]
     Active Substance: NATEGLINIDE
     Indication: Steroid diabetes
     Dosage: 90 MILLIGRAM, Q12H
     Route: 048
     Dates: start: 20231025, end: 20231206
  17. CALONAL [Concomitant]
     Active Substance: ACETAMINOPHEN
     Dosage: PERORAL MEDICINE
     Route: 048
     Dates: start: 20231020, end: 20231116
  18. AZILSARTAN KAMEDOXOMIL [Concomitant]
     Active Substance: AZILSARTAN KAMEDOXOMIL
     Indication: Hypertension
     Dosage: PER ORAL MEDICINE
     Route: 048
     Dates: start: 20231024, end: 20231208
  19. POLARAMINE [Concomitant]
     Active Substance: DEXCHLORPHENIRAMINE MALEATE
     Dosage: UNK
     Route: 065
     Dates: start: 20231020, end: 20231116

REACTIONS (5)
  - Vanishing bile duct syndrome [Not Recovered/Not Resolved]
  - Pneumocystis jirovecii pneumonia [Recovering/Resolving]
  - Tubulointerstitial nephritis [Recovered/Resolved]
  - Rhabdomyolysis [Recovered/Resolved]
  - Duodenal ulcer haemorrhage [Recovered/Resolved]

NARRATIVE: CASE EVENT DATE: 20231206
